FAERS Safety Report 18414390 (Version 2)
Quarter: 2020Q4

REPORT INFORMATION
  Report Type: Spontaneous
  Country: US (occurrence: US)
  Receive Date: 20201022
  Receipt Date: 20201204
  Transmission Date: 20210114
  Serious: Yes (Hospitalization, Other)
  Sender: FDA-Public Use
  Company Number: US-GLAXOSMITHKLINE-US2020AMR207817

PATIENT
  Age: 74 Year
  Sex: Male
  Weight: 84.35 kg

DRUGS (1)
  1. ADVAIR DISKUS [Suspect]
     Active Substance: FLUTICASONE PROPIONATE\SALMETEROL XINAFOATE
     Indication: PRODUCT USED FOR UNKNOWN INDICATION
     Dosage: 1 PUFF(S), BID, USE 1 INHALATION BY MOUTH INTO THE LUNGS EVERY 12 HOURS
     Route: 065

REACTIONS (3)
  - Cardiac operation [Unknown]
  - Cardiac aneurysm [Unknown]
  - Pneumonia [Unknown]

NARRATIVE: CASE EVENT DATE: 20200811
